FAERS Safety Report 7827684-X (Version None)
Quarter: 2011Q4

REPORT INFORMATION
  Report Type: 
  Country: None (occurrence: None)
  Receive Date: 20111019
  Receipt Date: 20111019
  Transmission Date: 20120403
  Serious: No
  Sender: FDA-Public Use
  Company Number: None

PATIENT
  Sex: Female
  Weight: 64.8 kg

DRUGS (4)
  1. MINOCYCLINE HCL [Suspect]
     Indication: ACNE
     Dosage: 50 MGM TWICE A DAY MOUTH
     Route: 048
     Dates: start: 20110915, end: 20110920
  2. LANTUS [Concomitant]
  3. ADVAIR DISKUS 100/50 [Concomitant]
  4. HUMALOG [Concomitant]

REACTIONS (3)
  - URTICARIA [None]
  - SERUM SICKNESS [None]
  - JOINT SWELLING [None]
